FAERS Safety Report 4972262-3 (Version None)
Quarter: 2006Q2

REPORT INFORMATION
  Report Type: 
  Country: None (occurrence: None)
  Receive Date: 20060413
  Receipt Date: 20060117
  Transmission Date: 20061013
  Serious: Yes (Life-Threatening, Other)
  Sender: FDA-Public Use
  Company Number: GBWYE308017JAN06

PATIENT
  Sex: Female
  Weight: 95 kg

DRUGS (3)
  1. ENBREL [Suspect]
     Indication: PSORIASIS
     Route: 065
     Dates: start: 20050719, end: 20060117
  2. MELOXICAM [Concomitant]
     Indication: ARTHRITIS
     Route: 048
     Dates: start: 20050201
  3. E45 [Concomitant]
     Indication: PSORIASIS
     Dosage: UNKNOWN
     Route: 061
     Dates: start: 20050201

REACTIONS (2)
  - BORDERLINE OVARIAN TUMOUR [None]
  - GALLBLADDER POLYP [None]
